FAERS Safety Report 20040738 (Version 1)
Quarter: 2021Q4

REPORT INFORMATION
  Report Type: Spontaneous
  Country: US (occurrence: None)
  Receive Date: 20211105
  Receipt Date: 20211105
  Transmission Date: 20220304
  Serious: Yes (Other)
  Sender: FDA-Public Use
  Company Number: None

PATIENT
  Age: 2 Year
  Sex: Female
  Weight: 10.89 kg

DRUGS (1)
  1. MULTI VITAMIN DROPS WITH FLUORIDE [Suspect]
     Active Substance: .ALPHA.-TOCOPHEROL SUCCINATE, D-\ASCORBIC ACID\CHOLECALCIFEROL\CYANOCOBALAMIN\NIACINAMIDE\PYRIDOXINE
     Indication: Vitamin supplementation
     Dosage: OTHER QUANTITY : 0.25MG/1ML;?FREQUENCY : DAILY;?
     Route: 048
     Dates: start: 202105, end: 20210513

REACTIONS (6)
  - Pyrexia [None]
  - Diarrhoea [None]
  - Rash [None]
  - Peripheral swelling [None]
  - Peripheral swelling [None]
  - Eye swelling [None]

NARRATIVE: CASE EVENT DATE: 20210513
